FAERS Safety Report 25810798 (Version 1)
Quarter: 2025Q3

REPORT INFORMATION
  Report Type: Spontaneous
  Country: JP (occurrence: JP)
  Receive Date: 20250917
  Receipt Date: 20250917
  Transmission Date: 20251021
  Serious: Yes (Hospitalization, Other)
  Sender: BRISTOL-MYERS SQUIBB COMPANY
  Company Number: JP-BRISTOL-MYERS SQUIBB COMPANY-2025-123482

PATIENT
  Age: 84 Year
  Sex: Male
  Weight: 52.3 kg

DRUGS (7)
  1. YERVOY [Suspect]
     Active Substance: IPILIMUMAB
     Indication: Malignant melanoma
  2. YERVOY [Suspect]
     Active Substance: IPILIMUMAB
     Dates: start: 20210827, end: 20210917
  3. OPDIVO [Suspect]
     Active Substance: NIVOLUMAB
     Indication: Malignant melanoma
  4. OPDIVO [Suspect]
     Active Substance: NIVOLUMAB
     Dates: start: 20210827, end: 20211027
  5. OPDIVO [Suspect]
     Active Substance: NIVOLUMAB
     Dates: start: 20211027, end: 20211110
  6. CANDESARTAN [Concomitant]
     Active Substance: CANDESARTAN
     Indication: Product used for unknown indication
  7. FEBUXOSTAT [Concomitant]
     Active Substance: FEBUXOSTAT
     Indication: Product used for unknown indication

REACTIONS (6)
  - Secondary adrenocortical insufficiency [Recovering/Resolving]
  - Colitis [Recovering/Resolving]
  - Central hypothyroidism [Recovering/Resolving]
  - Secondary hypogonadism [Recovering/Resolving]
  - Pneumonia [Unknown]
  - Hyperthyroidism [Unknown]

NARRATIVE: CASE EVENT DATE: 20201125
